FAERS Safety Report 7373876-6 (Version None)
Quarter: 2011Q1

REPORT INFORMATION
  Report Type: 
  Country: None (occurrence: None)
  Receive Date: 20110325
  Receipt Date: 20110318
  Transmission Date: 20110831
  Serious: No
  Sender: FDA-Public Use
  Company Number: US-PFIZER INC-2010176483

PATIENT
  Sex: Female

DRUGS (16)
  1. LYRICA [Suspect]
     Indication: DIABETIC NEUROPATHY
     Dosage: 75 MG, 1X/DAY
  2. HYDROXYZINE [Concomitant]
     Dosage: UNK
  3. FEXOFENADINE [Concomitant]
     Dosage: UNK
  4. LYRICA [Suspect]
     Indication: PARAESTHESIA
     Dosage: 1-2X/DAY
     Dates: start: 20101111, end: 20101220
  5. FLONASE [Concomitant]
     Dosage: UNK
  6. LYRICA [Suspect]
     Dosage: UNK
     Dates: start: 20101231
  7. INSULIN DETEMIR [Concomitant]
     Dosage: UNK
  8. MICARDIS HCT [Concomitant]
     Dosage: UNK
  9. EVISTA [Concomitant]
     Dosage: UNK
  10. PRAVASTATIN [Concomitant]
     Dosage: UNK
  11. ZETIA [Concomitant]
     Dosage: UNK
  12. VITAMIN B COMPLEX CAP [Concomitant]
     Dosage: UNK
  13. FENOFIBRATE [Concomitant]
     Dosage: UNK
  14. CALCIUM CITRATE [Concomitant]
     Dosage: UNK
  15. ALBUTEROL [Concomitant]
     Dosage: UNK
  16. ACTOS [Concomitant]
     Dosage: UNK

REACTIONS (2)
  - CONTUSION [None]
  - INJURY [None]
